FAERS Safety Report 16575147 (Version 2)
Quarter: 2019Q3

REPORT INFORMATION
  Report Type: Report from Study
  Country: CA (occurrence: CA)
  Receive Date: 20190715
  Receipt Date: 20190812
  Transmission Date: 20191004
  Serious: Yes (Other)
  Sender: FDA-Public Use
  Company Number: PHHY2013CA127372

PATIENT
  Age: 68 Year
  Sex: Female

DRUGS (8)
  1. CABERGOLINE. [Concomitant]
     Active Substance: CABERGOLINE
     Indication: PRODUCT USED FOR UNKNOWN INDICATION
     Dosage: 0.25 OT, UNK
     Route: 065
  2. SANDOSTATIN LAR DEPOT [Suspect]
     Active Substance: OCTREOTIDE ACETATE
     Dosage: 30 MG, QMO (EVERY 4 WEEKS)
     Route: 030
  3. SANDOSTATIN LAR DEPOT [Suspect]
     Active Substance: OCTREOTIDE ACETATE
     Dosage: 30 MG, QMO (EVERY 4 WEEKS)
     Route: 030
     Dates: start: 20141007
  4. SANDOSTATIN LAR DEPOT [Suspect]
     Active Substance: OCTREOTIDE ACETATE
     Indication: GROWTH HORMONE-PRODUCING PITUITARY TUMOUR
     Dosage: 20 MG, QMO (EVERY 4 WEEKS)
     Route: 030
     Dates: start: 20131030, end: 20140909
  5. COVERSYL [Concomitant]
     Active Substance: PERINDOPRIL
     Indication: PRODUCT USED FOR UNKNOWN INDICATION
     Dosage: UNK
     Route: 048
  6. FELODIPINE. [Concomitant]
     Active Substance: FELODIPINE
     Indication: PRODUCT USED FOR UNKNOWN INDICATION
     Dosage: UNK
     Route: 065
  7. HYDROCHLOROTHIAZIDE. [Concomitant]
     Active Substance: HYDROCHLOROTHIAZIDE
     Indication: PRODUCT USED FOR UNKNOWN INDICATION
     Dosage: UNK
     Route: 048
  8. SANDOSTATIN LAR DEPOT [Suspect]
     Active Substance: OCTREOTIDE ACETATE
     Dosage: UNK
     Route: 030
     Dates: start: 20170329

REACTIONS (31)
  - Hyperhidrosis [Unknown]
  - Blood glucose decreased [Unknown]
  - Musculoskeletal discomfort [Unknown]
  - Injection site pain [Not Recovered/Not Resolved]
  - Joint injury [Unknown]
  - Rash [Unknown]
  - Myalgia [Unknown]
  - Underdose [Unknown]
  - Sciatica [Unknown]
  - Heart rate decreased [Unknown]
  - Injection site bruising [Unknown]
  - Diarrhoea [Not Recovered/Not Resolved]
  - Needle issue [Unknown]
  - Blood pressure systolic increased [Unknown]
  - Nervousness [Unknown]
  - Fall [Unknown]
  - Body temperature decreased [Unknown]
  - Injection site mass [Recovering/Resolving]
  - Injection site swelling [Unknown]
  - Dizziness [Unknown]
  - Pain [Unknown]
  - Frequent bowel movements [Unknown]
  - Arthralgia [Unknown]
  - Stress [Unknown]
  - Irritable bowel syndrome [Not Recovered/Not Resolved]
  - Blood pressure increased [Unknown]
  - Anxiety [Unknown]
  - Rubber sensitivity [Unknown]
  - Contusion [Unknown]
  - Vertigo [Unknown]
  - Fatigue [Unknown]

NARRATIVE: CASE EVENT DATE: 20131101
